FAERS Safety Report 25438907 (Version 1)
Quarter: 2025Q2

REPORT INFORMATION
  Report Type: Spontaneous
  Country: US (occurrence: None)
  Receive Date: 20250613
  Receipt Date: 20250613
  Transmission Date: 20250716
  Serious: Yes (Hospitalization)
  Sender: FDA-CTU
  Company Number: None

PATIENT
  Age: 6 Year
  Sex: Female

DRUGS (1)
  1. XELJANZ [Suspect]
     Active Substance: TOFACITINIB CITRATE
     Indication: Colitis ulcerative
     Dosage: 10 MG/KG TWICE A DAY ORAL
     Route: 048
     Dates: start: 20250124

REACTIONS (2)
  - Colitis ulcerative [None]
  - Clostridium difficile infection [None]

NARRATIVE: CASE EVENT DATE: 20250513
